FAERS Safety Report 19590528 (Version 4)
Quarter: 2021Q4

REPORT INFORMATION
  Report Type: Other
  Country: FR (occurrence: FR)
  Receive Date: 20210722
  Receipt Date: 20211129
  Transmission Date: 20220303
  Serious: Yes (Other)
  Sender: FDA-Public Use
  Company Number: FR-CELLTRION INC.-2021FR009477

PATIENT

DRUGS (10)
  1. RITUXIMAB [Suspect]
     Active Substance: RITUXIMAB
     Indication: Acquired haemophilia
     Dosage: END DATE: 04/MAY/2021
     Route: 065
     Dates: start: 20110307
  2. RITUXIMAB [Suspect]
     Active Substance: RITUXIMAB
     Indication: Waldenstrom^s macroglobulinaemia
     Dosage: UNK
     Route: 065
     Dates: start: 20120625, end: 20120918
  3. RITUXIMAB [Suspect]
     Active Substance: RITUXIMAB
     Indication: Glomerulonephritis membranous
     Dosage: UNK
     Route: 065
     Dates: start: 201712, end: 201712
  4. RITUXIMAB [Suspect]
     Active Substance: RITUXIMAB
     Dosage: UNK
     Route: 065
     Dates: start: 20210309, end: 20210309
  5. FLUDARABINE [Suspect]
     Active Substance: FLUDARABINE PHOSPHATE
     Indication: Waldenstrom^s macroglobulinaemia
     Dosage: UNK
     Route: 065
     Dates: start: 20110207, end: 20110504
  6. CYCLOPHOSPHAMIDE [Suspect]
     Active Substance: CYCLOPHOSPHAMIDE
     Indication: Waldenstrom^s macroglobulinaemia
     Dosage: UNK
     Route: 065
     Dates: start: 20110307, end: 20110504
  7. REVLIMID [Suspect]
     Active Substance: LENALIDOMIDE
     Indication: Waldenstrom^s macroglobulinaemia
     Dosage: UNK
     Route: 065
     Dates: start: 20110701, end: 20120322
  8. BENDAMUSTINE [Suspect]
     Active Substance: BENDAMUSTINE
     Indication: Waldenstrom^s macroglobulinaemia
     Dosage: UNK
     Route: 065
     Dates: start: 20120625, end: 20120918
  9. DEXAMETHASONE [Suspect]
     Active Substance: DEXAMETHASONE
     Indication: Waldenstrom^s macroglobulinaemia
     Dosage: UNK
     Route: 065
     Dates: start: 20110701, end: 20120322
  10. VELCADE [Suspect]
     Active Substance: BORTEZOMIB
     Indication: Waldenstrom^s macroglobulinaemia
     Dosage: UNK
     Route: 065
     Dates: start: 20110701, end: 20120322

REACTIONS (7)
  - Renal tubular necrosis [Recovered/Resolved]
  - Primary amyloidosis [Unknown]
  - Generalised oedema [Unknown]
  - Sepsis [Unknown]
  - Pneumonia aspiration [Unknown]
  - Fat tissue increased [Unknown]
  - Off label use [Unknown]

NARRATIVE: CASE EVENT DATE: 20121026
